FAERS Safety Report 15058235 (Version 1)
Quarter: 2018Q2

REPORT INFORMATION
  Report Type: Spontaneous
  Country: CZ (occurrence: CZ)
  Receive Date: 20180625
  Receipt Date: 20180625
  Transmission Date: 20180711
  Serious: Yes (Hospitalization)
  Sender: FDA-Public Use
  Company Number: CZ-ACCORD-068626

PATIENT
  Age: 64 Year
  Sex: Male

DRUGS (6)
  1. BEVACIZUMAB. [Suspect]
     Active Substance: BEVACIZUMAB
     Indication: RECTAL CANCER METASTATIC
     Dates: start: 201011, end: 2011
  2. LORISTA [Concomitant]
     Active Substance: LOSARTAN POTASSIUM
  3. FLUOROURACIL. [Suspect]
     Active Substance: FLUOROURACIL
     Indication: RECTAL CANCER METASTATIC
     Dosage: LAST ADMINISTRATION DATE: JUN-2011
     Dates: start: 201011
  4. OXALIPLATIN. [Suspect]
     Active Substance: OXALIPLATIN
     Indication: RECTAL CANCER METASTATIC
     Dates: start: 201011
  5. FOLINIC ACID [Suspect]
     Active Substance: LEUCOVORIN
     Indication: RECTAL CANCER
     Dosage: LAST ADMINISTRATION DATE: JUN-2011
     Dates: start: 201011
  6. SORTIS [Concomitant]
     Active Substance: ATORVASTATIN

REACTIONS (2)
  - Venous thrombosis limb [Unknown]
  - Pulmonary embolism [Unknown]

NARRATIVE: CASE EVENT DATE: 20110326
